FAERS Safety Report 25618595 (Version 1)
Quarter: 2025Q3

REPORT INFORMATION
  Report Type: Spontaneous
  Country: US (occurrence: US)
  Receive Date: 20250729
  Receipt Date: 20250729
  Transmission Date: 20251021
  Serious: Yes (Other)
  Sender: DR REDDYS
  Company Number: None

PATIENT
  Age: 77 Year
  Sex: Male

DRUGS (1)
  1. AMIODARONE [Suspect]
     Active Substance: AMIODARONE
     Indication: Atrial fibrillation
     Dates: start: 201706, end: 202005

REACTIONS (3)
  - Graves^ disease [Recovering/Resolving]
  - Endocrine ophthalmopathy [Recovered/Resolved]
  - Thyroid dermatopathy [Recovering/Resolving]

NARRATIVE: CASE EVENT DATE: 20200101
